FAERS Safety Report 19469701 (Version 1)
Quarter: 2021Q2

REPORT INFORMATION
  Report Type: Report from Study
  Country: US (occurrence: US)
  Receive Date: 20210629
  Receipt Date: 20210629
  Transmission Date: 20210717
  Serious: Yes (Other)
  Sender: FDA-Public Use
  Company Number: US-SA-2021SA207649

PATIENT
  Age: 50 Year
  Sex: Female

DRUGS (1)
  1. IMIGLUCERASE [Suspect]
     Active Substance: IMIGLUCERASE

REACTIONS (2)
  - Blood pressure systolic decreased [Recovered/Resolved]
  - Near death experience [Recovered/Resolved]

NARRATIVE: CASE EVENT DATE: 2011
